FAERS Safety Report 4833256-1 (Version None)
Quarter: 2005Q4

REPORT INFORMATION
  Report Type: 
  Country: None (occurrence: None)
  Receive Date: 20051117
  Receipt Date: 20051108
  Transmission Date: 20060501
  Serious: Yes (Other)
  Sender: FDA-Public Use
  Company Number: JP_051108128

PATIENT
  Age: 67 Year
  Sex: Male

DRUGS (5)
  1. HUMULIN R [Suspect]
     Indication: DIABETES MELLITUS
     Dosage: 30 U DAY
     Dates: start: 20050101
  2. ANTIBIOTIC [Concomitant]
  3. IMMUNOGLOBULINS [Concomitant]
  4. POTASSIUM [Concomitant]
  5. TRILOSTANE [Concomitant]
     Indication: CUSHING'S SYNDROME

REACTIONS (3)
  - ARRHYTHMIA [None]
  - BLOOD POTASSIUM DECREASED [None]
  - SPINAL COMPRESSION FRACTURE [None]
